FAERS Safety Report 25953348 (Version 1)
Quarter: 2025Q4

REPORT INFORMATION
  Report Type: Spontaneous
  Country: US (occurrence: None)
  Receive Date: 20251023
  Receipt Date: 20251023
  Transmission Date: 20260119
  Serious: Yes (Hospitalization)
  Sender: FDA-CTU
  Company Number: None

PATIENT
  Age: 41 Year
  Sex: Female

DRUGS (1)
  1. HADLIMA [Suspect]
     Active Substance: ADALIMUMAB-BWWD
     Indication: Rheumatoid arthritis
     Dosage: OTHER QUANTITY : 40/0.4 MG/ML ;?FREQUENCY : EVERY OTHER WEEK;?
     Route: 058
     Dates: start: 20250922

REACTIONS (1)
  - Nasal congestion [None]
